FAERS Safety Report 12799924 (Version 1)
Quarter: 2016Q3

REPORT INFORMATION
  Report Type: Spontaneous
  Country: FR (occurrence: FR)
  Receive Date: 20160930
  Receipt Date: 20160930
  Transmission Date: 20161109
  Serious: Yes (Hospitalization)
  Sender: FDA-Public Use
  Company Number: FR-BIOGEN-2016BI00298295

PATIENT
  Age: 34 Year
  Sex: Female

DRUGS (1)
  1. TYSABRI [Suspect]
     Active Substance: NATALIZUMAB
     Indication: RELAPSING-REMITTING MULTIPLE SCLEROSIS
     Route: 042
     Dates: start: 20160620

REACTIONS (4)
  - Septic shock [Not Recovered/Not Resolved]
  - Endocarditis [Not Recovered/Not Resolved]
  - Atrioventricular block complete [Not Recovered/Not Resolved]
  - Staphylococcal bacteraemia [Not Recovered/Not Resolved]

NARRATIVE: CASE EVENT DATE: 20160728
